FAERS Safety Report 8932530 (Version 1)
Quarter: 2012Q4

REPORT INFORMATION
  Report Type: Spontaneous
  Country: IT (occurrence: None)
  Receive Date: 20121120
  Receipt Date: 20121120
  Transmission Date: 20130627
  Serious: Yes (Disabling, Other)
  Sender: FDA-Public Use
  Company Number: FK201203317

PATIENT
  Age: 38 Year
  Sex: Male

DRUGS (3)
  1. HEPARIN [Suspect]
     Indication: PRODUCT USED FOR UNKNOWN INDICATION
     Route: 042
  2. ENOXAPARIN SODIUM [Suspect]
  3. LEPIRUDINE (LEPIRUDIN) [Concomitant]

REACTIONS (6)
  - Ischaemic stroke [None]
  - Heparin-induced thrombocytopenia [None]
  - Pulmonary embolism [None]
  - Carotid artery occlusion [None]
  - Thalamic infarction [None]
  - Amaurosis fugax [None]
